FAERS Safety Report 9381428 (Version 1)
Quarter: 2013Q3

REPORT INFORMATION
  Report Type: Report from Study
  Country: MX (occurrence: MX)
  Receive Date: 20130703
  Receipt Date: 20130703
  Transmission Date: 20140515
  Serious: Yes (Other)
  Sender: FDA-Public Use
  Company Number: PHHY2013MX068830

PATIENT
  Age: 78 Year
  Sex: Female

DRUGS (4)
  1. CO-DIOVAN [Suspect]
     Dosage: 1 DF(80/12.5MG), DAILY
     Route: 048
     Dates: start: 200712
  2. CO-DIOVAN [Suspect]
     Dosage: 1 DF(320/25MG), DAILY
     Route: 048
     Dates: start: 201306
  3. ATROPINE [Concomitant]
     Indication: BRONCHIAL DISORDER
     Dosage: 3 UKN, DAILY
  4. BECLOMETASONE [Concomitant]
     Indication: BRONCHIAL DISORDER
     Dosage: 3 UKN, DAILY

REACTIONS (3)
  - Lung disorder [Not Recovered/Not Resolved]
  - Hearing impaired [Not Recovered/Not Resolved]
  - Local swelling [Not Recovered/Not Resolved]
